FAERS Safety Report 7951965-2 (Version None)
Quarter: 2011Q4

REPORT INFORMATION
  Report Type: 
  Country: None (occurrence: None)
  Receive Date: 20111201
  Receipt Date: 20111124
  Transmission Date: 20120403
  Serious: Yes (Hospitalization)
  Sender: FDA-Public Use
  Company Number: FR-PFIZER INC-2011287299

PATIENT
  Age: 76 Year
  Sex: Male

DRUGS (13)
  1. MORPHINE [Suspect]
     Dosage: 1XDAY
     Route: 042
     Dates: start: 20110907, end: 20110909
  2. MODOPAR [Concomitant]
  3. VFEND [Interacting]
     Indication: ASPERGILLOSIS
     Dosage: 200 MG, 2X/DAY
     Route: 042
     Dates: start: 20110819, end: 20110914
  4. AUGMENTIN [Concomitant]
  5. NOREPINEPHRINE BITARTRATE [Concomitant]
  6. METRONIDAZOLE [Concomitant]
  7. MIDAZOLAM HCL [Suspect]
     Dosage: 1 DF, 1X/DAY
     Route: 042
     Dates: start: 20110817, end: 20110907
  8. PANTOPRAZOLE [Concomitant]
  9. SUFENTA PRESERVATIVE FREE [Suspect]
     Dosage: 1 DF, 1X/DAY
     Route: 042
     Dates: start: 20110817, end: 20110907
  10. HEPARIN [Concomitant]
  11. REQUIP [Concomitant]
  12. PARACETAMOL [Concomitant]
  13. HYDROCORTISONE HEMISUCCINATE [Concomitant]

REACTIONS (1)
  - COMA [None]
